FAERS Safety Report 10229679 (Version 1)
Quarter: 2014Q2

REPORT INFORMATION
  Report Type: Spontaneous
  Country: JP (occurrence: JP)
  Receive Date: 20140611
  Receipt Date: 20140611
  Transmission Date: 20141212
  Serious: Yes (Other)
  Sender: FDA-Public Use
  Company Number: PHHY2014JP070166

PATIENT
  Age: 81 Year
  Sex: Female

DRUGS (5)
  1. EXELON PATCH [Suspect]
     Dosage: UNK UKN, UNK
     Route: 062
  2. EXELON PATCH [Suspect]
     Dosage: 13.5 MG, UNK
     Route: 062
  3. EXELON PATCH [Suspect]
     Dosage: 4.5 MG, UNK
     Route: 062
  4. DONEPEZIL HYDROCHLORIDE [Suspect]
     Dosage: UNK UKN, UNK
  5. DONEPEZIL HYDROCHLORIDE [Suspect]
     Dosage: 5 MG, DAILY

REACTIONS (5)
  - Paranoia [Unknown]
  - Frustration [Unknown]
  - Anxiety [Unknown]
  - Hallucination, auditory [Unknown]
  - Concomitant disease aggravated [Unknown]
